FAERS Safety Report 17651506 (Version 1)
Quarter: 2020Q2

REPORT INFORMATION
  Report Type: Spontaneous
  Country: US (occurrence: US)
  Receive Date: 20200409
  Receipt Date: 20200409
  Transmission Date: 20200713
  Serious: Yes (Death)
  Sender: FDA-Public Use
  Company Number: None

PATIENT
  Sex: Female
  Weight: 87.27 kg

DRUGS (18)
  1. FUROSEMIDE. [Concomitant]
     Active Substance: FUROSEMIDE
  2. LORAZEPAM. [Concomitant]
     Active Substance: LORAZEPAM
  3. HYDROMORPHONE [Concomitant]
     Active Substance: HYDROMORPHONE
  4. LENALIDOMIDE [Suspect]
     Active Substance: LENALIDOMIDE
  5. ERTAPENZM [Concomitant]
  6. MAGNESIUM SULFATE. [Concomitant]
     Active Substance: MAGNESIUM SULFATE
  7. VELCADE [Suspect]
     Active Substance: BORTEZOMIB
  8. RIVAROXABAN [Concomitant]
     Active Substance: RIVAROXABAN
  9. DEXAMETHASONE. [Suspect]
     Active Substance: DEXAMETHASONE
  10. MEROPENEM. [Concomitant]
     Active Substance: MEROPENEM
  11. PANTOPRAZOLE [Concomitant]
     Active Substance: PANTOPRAZOLE
  12. SODIUM BICARBONATE 8.4% IN DEXTROSE 5% [Concomitant]
  13. METOPROLOL TARTATE [Concomitant]
     Active Substance: METOPROLOL TARTRATE
  14. VANCOMYCIN [Concomitant]
     Active Substance: VANCOMYCIN
  15. LEVALBUTEROL HCL [Concomitant]
     Active Substance: LEVALBUTEROL HYDROCHLORIDE
  16. HYDROCORTISONE SODIUM SUCCINATE [Concomitant]
     Active Substance: HYDROCORTISONE SODIUM SUCCINATE
  17. MORPHINE [Concomitant]
     Active Substance: MORPHINE
  18. SODIUM CHLORIDE 0.9% [Concomitant]
     Active Substance: SODIUM CHLORIDE

REACTIONS (17)
  - Diarrhoea [None]
  - Acute kidney injury [None]
  - Type 2 diabetes mellitus [None]
  - Erythema [None]
  - Oedema [None]
  - Acidosis [None]
  - Haemodynamic instability [None]
  - Plasmacytoma [None]
  - Asthenia [None]
  - Sepsis [None]
  - Hypotension [None]
  - Rib fracture [None]
  - Plasma cell myeloma [None]
  - Stem cell transplant [None]
  - Atrial fibrillation [None]
  - Anaemia [None]
  - Cardiac failure congestive [None]

NARRATIVE: CASE EVENT DATE: 20180824
